FAERS Safety Report 7892338-0 (Version None)
Quarter: 2011Q4

REPORT INFORMATION
  Report Type: 
  Country: None (occurrence: None)
  Receive Date: 20111103
  Receipt Date: 20111103
  Transmission Date: 20120403
  Serious: Yes (Hospitalization)
  Sender: FDA-Public Use
  Company Number: None

PATIENT
  Sex: Female
  Weight: 114 kg

DRUGS (3)
  1. TAXOL [Suspect]
     Dosage: 160 MG
     Dates: end: 20111006
  2. DIOVAN [Concomitant]
  3. CARBOPLATIN [Suspect]
     Dosage: 570 MG
     Dates: end: 20111006

REACTIONS (10)
  - ANAEMIA [None]
  - URINARY TRACT INFECTION [None]
  - PERFORMANCE STATUS DECREASED [None]
  - VOMITING [None]
  - FAILURE TO THRIVE [None]
  - DIZZINESS [None]
  - WHITE BLOOD CELL COUNT DECREASED [None]
  - ASTHENIA [None]
  - NAUSEA [None]
  - POLLAKIURIA [None]
